FAERS Safety Report 4569343-5 (Version None)
Quarter: 2005Q1

REPORT INFORMATION
  Report Type: 
  Country: None (occurrence: None)
  Receive Date: 20050203
  Receipt Date: 20041221
  Transmission Date: 20050727
  Serious: Yes (Other)
  Sender: FDA-Public Use
  Company Number: AU-GLAXOSMITHKLINE-B0362996A

PATIENT
  Age: 73 Year
  Sex: Female

DRUGS (6)
  1. AVANDIA [Suspect]
     Indication: ILL-DEFINED DISORDER
     Dosage: 4MG UNKNOWN
     Route: 048
  2. CARTIA XT [Concomitant]
  3. LOVAN [Concomitant]
  4. METFORMIN HCL [Concomitant]
  5. MYLANTA [Concomitant]
  6. NOTEN [Concomitant]

REACTIONS (3)
  - ANAEMIA [None]
  - COMPUTERISED TOMOGRAM ABNORMAL [None]
  - GASTRIC DISORDER [None]
